FAERS Safety Report 9341735 (Version 2)
Quarter: 2013Q2

REPORT INFORMATION
  Report Type: Spontaneous
  Country: US (occurrence: US)
  Receive Date: 20130611
  Receipt Date: 20130624
  Transmission Date: 20140414
  Serious: Yes (Other)
  Sender: FDA-Public Use
  Company Number: US-SANOFI-AVENTIS-2013SA041432

PATIENT
  Age: 68 Year
  Sex: Male

DRUGS (3)
  1. ZALTRAP [Suspect]
     Indication: COLORECTAL CANCER METASTATIC
     Dates: start: 20130403
  2. ZALTRAP [Suspect]
     Indication: COLORECTAL CANCER METASTATIC
     Dates: start: 20130403
  3. 5-FU [Concomitant]

REACTIONS (6)
  - Hallucination [Unknown]
  - Bronchospasm [Unknown]
  - Dysphonia [Unknown]
  - Pharyngeal oedema [Unknown]
  - Cough [Recovered/Resolved]
  - Asthenia [Unknown]
